FAERS Safety Report 7619685-1 (Version None)
Quarter: 2011Q3

REPORT INFORMATION
  Report Type: 
  Country: None (occurrence: None)
  Receive Date: 20110719
  Receipt Date: 20110712
  Transmission Date: 20111222
  Serious: Yes (Hospitalization, Other)
  Sender: FDA-Public Use
  Company Number: US-BAYER-2011-023000

PATIENT
  Age: 28 Year
  Sex: Female

DRUGS (5)
  1. YAZ [Suspect]
     Indication: CONTRACEPTION
     Dosage: OTHER, SPECIFY: SAMPLE +#8220;3+#8221; (NUMBER NOT CLARIFIED)
     Dates: start: 20080101, end: 20090801
  2. YASMIN [Suspect]
     Indication: CONTRACEPTION
     Dosage: OTHER, SPECIFY: SAMPLE +#8220;3+#8221; (NUMBER NOT CLARIFIED)
     Dates: start: 20081201, end: 20090801
  3. FISH OIL [Concomitant]
  4. ASCORBIC ACID [Concomitant]
  5. IBUPROFEN [Concomitant]

REACTIONS (16)
  - BILIARY COLIC [None]
  - INJURY [None]
  - PAIN [None]
  - LIBIDO DECREASED [None]
  - ARRHYTHMIA [None]
  - FEAR OF DEATH [None]
  - GALLBLADDER DISORDER [None]
  - DEPRESSION [None]
  - FOOD INTOLERANCE [None]
  - URINARY TRACT INFECTION [None]
  - NERVOUSNESS [None]
  - OLIGOMENORRHOEA [None]
  - MENSTRUATION IRREGULAR [None]
  - CHOLELITHIASIS [None]
  - BOWEL MOVEMENT IRREGULARITY [None]
  - EMOTIONAL DISTRESS [None]
